FAERS Safety Report 6699023-1 (Version None)
Quarter: 2010Q2

REPORT INFORMATION
  Report Type: 
  Country: None (occurrence: None)
  Receive Date: 20100426
  Receipt Date: 20100426
  Transmission Date: 20101027
  Serious: Yes (Life-Threatening)
  Sender: FDA-Public Use
  Company Number: None

PATIENT
  Age: 72 Year
  Sex: Male
  Weight: 108.7 kg

DRUGS (1)
  1. CEFEPIME [Suspect]
     Indication: PNEUMONIA
     Dosage: 1 GM EVERY DAY IV
     Route: 042
     Dates: start: 20100404, end: 20100412

REACTIONS (1)
  - PYREXIA [None]
